FAERS Safety Report 19375802 (Version 1)
Quarter: 2021Q2

REPORT INFORMATION
  Report Type: Spontaneous
  Country: CZ (occurrence: CZ)
  Receive Date: 20210604
  Receipt Date: 20210604
  Transmission Date: 20210717
  Serious: Yes (Hospitalization, Other)
  Sender: FDA-Public Use
  Company Number: CZ-GLAXOSMITHKLINE-CZ2021117627

PATIENT
  Age: 45 Year
  Sex: Male

DRUGS (18)
  1. LEVETIRACETAM. [Suspect]
     Active Substance: LEVETIRACETAM
     Indication: EPILEPSY
  2. LAMOTRIGINE. [Suspect]
     Active Substance: LAMOTRIGINE
     Indication: SEIZURE
     Dosage: 400 MG, QD
     Route: 065
  3. TOPIRAMATE. [Suspect]
     Active Substance: TOPIRAMATE
     Indication: EPILEPSY
  4. ESLICARBAZEPINE [Suspect]
     Active Substance: ESLICARBAZEPINE
     Indication: EPILEPSY
  5. VALPROATE [Suspect]
     Active Substance: VALPROIC ACID
     Indication: PSYCHOGENIC SEIZURE
  6. BRIVARACETAM [Concomitant]
     Active Substance: BRIVARACETAM
     Dosage: 50 MG, QD
     Route: 065
  7. CARBAMAZEPINE. [Suspect]
     Active Substance: CARBAMAZEPINE
     Indication: PSYCHOGENIC SEIZURE
  8. LEVETIRACETAM. [Suspect]
     Active Substance: LEVETIRACETAM
     Indication: PSYCHOGENIC SEIZURE
  9. TOPIRAMATE. [Suspect]
     Active Substance: TOPIRAMATE
     Indication: DRUG THERAPY
     Dosage: 200 MG, QD
     Route: 048
  10. ESLICARBAZEPINE [Suspect]
     Active Substance: ESLICARBAZEPINE
     Indication: PSYCHOGENIC SEIZURE
     Dosage: UNK
     Route: 065
  11. VALPROATE [Suspect]
     Active Substance: VALPROIC ACID
     Indication: DEPRESSION
     Dosage: UNK
     Route: 065
  12. VALPROATE [Suspect]
     Active Substance: VALPROIC ACID
     Indication: EPILEPSY
  13. BRIVARACETAM [Concomitant]
     Active Substance: BRIVARACETAM
     Dosage: 100 MG, QD
     Route: 065
  14. LEVETIRACETAM. [Suspect]
     Active Substance: LEVETIRACETAM
     Indication: DEPRESSION
     Dosage: UNK
     Route: 065
  15. LAMOTRIGINE. [Suspect]
     Active Substance: LAMOTRIGINE
     Indication: DRUG THERAPY
  16. BRIVARACETAM [Concomitant]
     Active Substance: BRIVARACETAM
     Indication: EPILEPSY
     Dosage: 25 MG, BID
     Route: 065
  17. CARBAMAZEPINE. [Suspect]
     Active Substance: CARBAMAZEPINE
     Indication: EPILEPSY
     Dosage: UNK
     Route: 065
  18. VALPROATE [Suspect]
     Active Substance: VALPROIC ACID
     Indication: SEIZURE

REACTIONS (11)
  - Condition aggravated [Recovered/Resolved]
  - Seizure [Not Recovered/Not Resolved]
  - Drug intolerance [Unknown]
  - Weight increased [Unknown]
  - Mental disorder [Unknown]
  - Thinking abnormal [Unknown]
  - Erectile dysfunction [Unknown]
  - Psychiatric symptom [Unknown]
  - Psychogenic seizure [Recovered/Resolved]
  - Off label use [Unknown]
  - Therapeutic product effect decreased [Unknown]
